FAERS Safety Report 6752340-9 (Version None)
Quarter: 2010Q2

REPORT INFORMATION
  Report Type: 
  Country: None (occurrence: None)
  Receive Date: 20100602
  Receipt Date: 20100519
  Transmission Date: 20101027
  Serious: Yes (Hospitalization, Other)
  Sender: FDA-Public Use
  Company Number: NL-PFIZER INC-2010063551

PATIENT
  Age: 75 Year
  Sex: Male

DRUGS (8)
  1. AMLODIPINE BESYLATE [Suspect]
     Dosage: 300 MG, SINGLE
     Route: 048
  2. ATORVASTATIN CALCIUM [Interacting]
     Dosage: 1200 MG, SINGLE
     Route: 048
  3. ISOSORBIDE MONONITRATE [Interacting]
     Dosage: 6000 MG, SINGLE
     Route: 048
  4. SOTALOL [Interacting]
     Dosage: 7200 MG, SINGLE
     Route: 048
  5. FUROSEMIDE [Interacting]
     Dosage: 800 MG, SINGLE
     Route: 048
  6. DIGOXIN [Interacting]
     Dosage: 7.125 MG, SINGLE
     Route: 048
  7. ACENOCOUMAROL [Interacting]
     Dosage: 98 MG, SINGLE
     Route: 048
  8. PERINDOPRIL [Interacting]
     Dosage: 200 MG, SINGLE
     Route: 048

REACTIONS (8)
  - CARDIOACTIVE DRUG LEVEL INCREASED [None]
  - CARDIOGENIC SHOCK [None]
  - DISORIENTATION [None]
  - DRUG INTERACTION [None]
  - ELECTROCARDIOGRAM QRS COMPLEX PROLONGED [None]
  - ELECTROCARDIOGRAM QT PROLONGED [None]
  - MULTIPLE DRUG OVERDOSE [None]
  - VENTRICULAR ARRHYTHMIA [None]
